FAERS Safety Report 5755845-2 (Version None)
Quarter: 2008Q2

REPORT INFORMATION
  Report Type: 
  Country: None (occurrence: None)
  Receive Date: 20080528
  Receipt Date: 20080513
  Transmission Date: 20081010
  Serious: Yes (Disabling, Other)
  Sender: FDA-Public Use
  Company Number: 2008S1007231

PATIENT
  Age: 12 Year
  Sex: Female

DRUGS (7)
  1. OXYBUTYNIN CHLORIDE [Suspect]
     Indication: AUTOMATIC BLADDER
     Dosage: 5 MG;DAILY;ORAL
     Route: 048
     Dates: start: 20071101, end: 20080422
  2. OXYBUTYNIN CHLORIDE [Suspect]
     Indication: POLLAKIURIA
     Dosage: 5 MG;DAILY;ORAL
     Route: 048
     Dates: start: 20071101, end: 20080422
  3. OXYBUTYNIN CHLORIDE [Suspect]
     Indication: URINARY INCONTINENCE
     Dosage: 5 MG;DAILY;ORAL
     Route: 048
     Dates: start: 20071101, end: 20080422
  4. MELATONIN [Concomitant]
  5. MULTIVITAMIN /00097801/ [Concomitant]
  6. CALCIUM [Concomitant]
  7. FISH OIL [Concomitant]

REACTIONS (5)
  - ABDOMINAL PAIN [None]
  - ANXIETY [None]
  - CONSTIPATION [None]
  - CRYING [None]
  - EDUCATIONAL PROBLEM [None]
